FAERS Safety Report 7395791-4 (Version None)
Quarter: 2011Q2

REPORT INFORMATION
  Report Type: 
  Country: None (occurrence: None)
  Receive Date: 20110405
  Receipt Date: 20110330
  Transmission Date: 20111010
  Serious: Yes (Other)
  Sender: FDA-Public Use
  Company Number: JP-MERCK-1104USA00096

PATIENT

DRUGS (1)
  1. JANUVIA [Suspect]
     Indication: BLOOD GLUCOSE DECREASED
     Route: 048

REACTIONS (1)
  - CONVULSION [None]
